FAERS Safety Report 7495052-9 (Version None)
Quarter: 2011Q2

REPORT INFORMATION
  Report Type: 
  Country: None (occurrence: None)
  Receive Date: 20110520
  Receipt Date: 20110513
  Transmission Date: 20111010
  Serious: Yes (Hospitalization)
  Sender: FDA-Public Use
  Company Number: CN-GENENTECH-318993

PATIENT
  Age: 68 Year
  Sex: Female
  Weight: 60 kg

DRUGS (2)
  1. RITUXAN [Suspect]
     Indication: DIFFUSE LARGE B-CELL LYMPHOMA
     Dosage: 600 MG, Q3W
     Route: 041
     Dates: start: 20110223, end: 20110428
  2. CHOP REGIMEN [Concomitant]
     Indication: DIFFUSE LARGE B-CELL LYMPHOMA
     Dosage: UNK UNK, Q3W
     Dates: start: 20110223, end: 20110428

REACTIONS (6)
  - PYREXIA [None]
  - LUNG INFECTION [None]
  - MOUTH ULCERATION [None]
  - WHITE BLOOD CELL COUNT DECREASED [None]
  - COUGH [None]
  - ATELECTASIS [None]
